FAERS Safety Report 9875766 (Version 2)
Quarter: 2014Q1

REPORT INFORMATION
  Report Type: Spontaneous
  Country: US (occurrence: US)
  Receive Date: 20140206
  Receipt Date: 20140206
  Transmission Date: 20141002
  Serious: No
  Sender: FDA-Public Use
  Company Number: US-ACORDA-ACO_37080_2013

PATIENT
  Age: 75 Year
  Sex: Male

DRUGS (2)
  1. AMPYRA [Suspect]
     Indication: PRIMARY PROGRESSIVE MULTIPLE SCLEROSIS
     Dosage: 10 MG, BID
     Route: 048
     Dates: start: 201005, end: 201301
  2. AMPYRA [Suspect]
     Dosage: 10 MG, BID
     Route: 048

REACTIONS (1)
  - Multiple sclerosis relapse [Recovering/Resolving]
